FAERS Safety Report 7721755-4 (Version None)
Quarter: 2011Q3

REPORT INFORMATION
  Report Type: 
  Country: None (occurrence: None)
  Receive Date: 20110831
  Receipt Date: 20110825
  Transmission Date: 20111222
  Serious: Yes (Other)
  Sender: FDA-Public Use
  Company Number: MX-US-EMD SERONO, INC.-7079193

PATIENT
  Sex: Male
  Weight: 30 kg

DRUGS (1)
  1. SAIZEN [Suspect]
     Indication: GROWTH RETARDATION
     Route: 058
     Dates: start: 20090126, end: 20110624

REACTIONS (3)
  - TESTICULAR DISORDER [None]
  - VASODILATATION [None]
  - VARICOCELE [None]
